FAERS Safety Report 9222416 (Version 2)
Quarter: 2013Q2

REPORT INFORMATION
  Report Type: Spontaneous
  Country: US (occurrence: US)
  Receive Date: 20130410
  Receipt Date: 20130520
  Transmission Date: 20140414
  Serious: Yes (Other)
  Sender: FDA-Public Use
  Company Number: US-ELI_LILLY_AND_COMPANY-US201304001109

PATIENT
  Age: 64 Year
  Sex: Female
  Weight: 74.38 kg

DRUGS (10)
  1. CYMBALTA [Suspect]
     Indication: FIBROMYALGIA
     Dosage: 60 MG, UNKNOWN
     Dates: start: 2010
  2. AVASTIN [Concomitant]
  3. SUTENT [Concomitant]
     Indication: RENAL CANCER
     Dosage: 50 MG, QD
     Dates: start: 20120329
  4. SUTENT [Concomitant]
     Dosage: 37.5 MG, QD
     Route: 048
     Dates: start: 20120510
  5. LISINOPRIL [Concomitant]
     Indication: BLOOD PRESSURE
     Dosage: 5 MG, QD
  6. LEVOTHYROXINE [Concomitant]
     Indication: THYROID DISORDER
     Dosage: 25 MG, QD
  7. LEVOTHYROXINE [Concomitant]
     Dosage: 50 UG, UNKNOWN
  8. LEVOTHYROXINE [Concomitant]
     Dosage: 75 UG, UNKNOWN
  9. LEVOTHYROXINE [Concomitant]
     Dosage: 88 MEQ, QD
  10. ATENOLOL [Concomitant]
     Indication: HYPERTENSION
     Dosage: 25 MG, QD

REACTIONS (17)
  - Renal cancer [Unknown]
  - Swelling face [Recovered/Resolved]
  - Rash [Recovered/Resolved]
  - Jaundice [Recovered/Resolved]
  - Thyroid function test abnormal [Not Recovered/Not Resolved]
  - Amnesia [Recovering/Resolving]
  - Hair colour changes [Not Recovered/Not Resolved]
  - Stomatitis [Recovered/Resolved]
  - Sinus disorder [Unknown]
  - Somnolence [Recovered/Resolved]
  - Fatigue [Recovered/Resolved]
  - Nasopharyngitis [Unknown]
  - Dizziness [Not Recovered/Not Resolved]
  - Nausea [Recovering/Resolving]
  - Hypersomnia [Unknown]
  - Nasal mucosal disorder [Recovered/Resolved]
  - Fear [Recovering/Resolving]
